FAERS Safety Report 21675466 (Version 1)
Quarter: 2022Q4

REPORT INFORMATION
  Report Type: Spontaneous
  Country: US (occurrence: US)
  Receive Date: 20221202
  Receipt Date: 20221202
  Transmission Date: 20230113
  Serious: No
  Sender: FDA-Public Use
  Company Number: US-BRISTOL-MYERS SQUIBB COMPANY-2022-146949

PATIENT
  Age: 45 Year
  Sex: Male

DRUGS (1)
  1. SPRYCEL [Suspect]
     Active Substance: DASATINIB
     Indication: Chronic myeloid leukaemia
     Dosage: FREQUENCY-DAILY
     Route: 048
     Dates: start: 202209

REACTIONS (8)
  - Diarrhoea [Unknown]
  - Faeces discoloured [Unknown]
  - Rash [Unknown]
  - Back pain [Unknown]
  - Erythema [Unknown]
  - Acne [Unknown]
  - Chest pain [Unknown]
  - Pain in extremity [Unknown]
